FAERS Safety Report 20710553 (Version 1)
Quarter: 2022Q2

REPORT INFORMATION
  Report Type: Report from Study
  Country: CN (occurrence: CN)
  Receive Date: 20220414
  Receipt Date: 20220414
  Transmission Date: 20220721
  Serious: Yes (Hospitalization, Other)
  Sender: FDA-Public Use
  Company Number: CN-GLAXOSMITHKLINE-CN2022GSK061567

PATIENT
  Age: 44 Year
  Sex: Male

DRUGS (2)
  1. BELANTAMAB MAFODOTIN [Suspect]
     Active Substance: BELANTAMAB MAFODOTIN
     Indication: Plasma cell myeloma
     Dosage: 3.07 MG/KG
     Route: 042
     Dates: start: 20220114, end: 20220114
  2. BELANTAMAB MAFODOTIN [Suspect]
     Active Substance: BELANTAMAB MAFODOTIN
     Indication: Renal cancer

REACTIONS (2)
  - Thrombocytopenia [Unknown]
  - Corneal toxicity [Unknown]

NARRATIVE: CASE EVENT DATE: 20220120
